FAERS Safety Report 6187965-5 (Version None)
Quarter: 2009Q2

REPORT INFORMATION
  Report Type: 
  Country: None (occurrence: None)
  Receive Date: 20090513
  Receipt Date: 20090506
  Transmission Date: 20091009
  Serious: Yes (Hospitalization, Other)
  Sender: FDA-Public Use
  Company Number: US-ROCHE-624529

PATIENT
  Sex: Female
  Weight: 75 kg

DRUGS (6)
  1. XELODA [Suspect]
     Dosage: FOR 14 DAYS MONTHLY
     Route: 048
  2. METHADONE HCL [Concomitant]
     Indication: PAIN
     Dosage: FREQUENCY: Q8
     Route: 048
  3. MORPHINE [Concomitant]
     Indication: PAIN
     Dosage: FREQUENCY: Q8
     Route: 048
  4. NEURONTIN [Concomitant]
     Indication: PAIN
     Dosage: GREQUENCY: Q12
     Route: 048
  5. ZOFRON [Concomitant]
     Indication: NAUSEA
     Dosage: FREQUENCY: Q8
     Route: 048
  6. PAXIL [Concomitant]
     Indication: DEPRESSION
     Dosage: FREQUENCY: QHS
     Route: 048

REACTIONS (3)
  - DISEASE PROGRESSION [None]
  - JOINT SWELLING [None]
  - PAIN IN EXTREMITY [None]
